FAERS Safety Report 17247078 (Version 1)
Quarter: 2020Q1

REPORT INFORMATION
  Report Type: Spontaneous
  Country: US (occurrence: US)
  Receive Date: 20200107
  Receipt Date: 20200107
  Transmission Date: 20200409
  Serious: Yes (Disabling)
  Sender: FDA-Public Use
  Company Number: None

PATIENT
  Age: 77 Year
  Sex: Female
  Weight: 87.75 kg

DRUGS (4)
  1. LEVOFLOXACIN 750 MG [Suspect]
     Active Substance: LEVOFLOXACIN
     Indication: PNEUMONIA
     Dosage: ?          QUANTITY:1 TABLET(S);?
     Dates: start: 20191220, end: 20191231
  2. ORTH TRI-CYCLEN LO [Concomitant]
  3. ELDERBERRY [Concomitant]
     Active Substance: HERBALS
  4. VITAMIN C [Concomitant]
     Active Substance: ASCORBIC ACID

REACTIONS (5)
  - Musculoskeletal pain [None]
  - Pain in extremity [None]
  - Insomnia [None]
  - Pneumonia [None]
  - Gait disturbance [None]

NARRATIVE: CASE EVENT DATE: 20191220
